FAERS Safety Report 14610374 (Version 1)
Quarter: 2018Q1

REPORT INFORMATION
  Report Type: Spontaneous
  Country: US (occurrence: US)
  Receive Date: 20180307
  Receipt Date: 20180307
  Transmission Date: 20180509
  Serious: No
  Sender: FDA-Public Use
  Company Number: US-BIOGEN-2015BI118942

PATIENT
  Age: 39 Year
  Sex: Female

DRUGS (6)
  1. AVONEX [Suspect]
     Active Substance: INTERFERON BETA-1A
     Route: 030
     Dates: start: 201802
  2. AVONEX [Suspect]
     Active Substance: INTERFERON BETA-1A
     Indication: MULTIPLE SCLEROSIS
     Route: 030
     Dates: start: 20150808, end: 201509
  3. AVONEX [Suspect]
     Active Substance: INTERFERON BETA-1A
     Dosage: WEEK 1 1/4, WEEK 2 1/2, WEEK 3 3/4, WEEK 4 FULL
     Route: 030
     Dates: start: 20180127, end: 201802
  4. AVONEX [Suspect]
     Active Substance: INTERFERON BETA-1A
     Route: 030
     Dates: start: 201509, end: 201612
  5. TYLENOL [Suspect]
     Active Substance: ACETAMINOPHEN
     Indication: INFLUENZA LIKE ILLNESS
     Route: 050
  6. AVONEX [Suspect]
     Active Substance: INTERFERON BETA-1A
     Route: 030
     Dates: start: 20150805

REACTIONS (3)
  - Stress [Unknown]
  - Influenza like illness [Unknown]
  - Injection site reaction [Unknown]

NARRATIVE: CASE EVENT DATE: 20150826
